FAERS Safety Report 12624373 (Version 2)
Quarter: 2016Q3

REPORT INFORMATION
  Report Type: Spontaneous
  Country: GB (occurrence: GB)
  Receive Date: 20160805
  Receipt Date: 20160805
  Transmission Date: 20161109
  Serious: Yes (Other)
  Sender: FDA-Public Use
  Company Number: GB-CIPLA LTD.-2016GB10325

PATIENT

DRUGS (7)
  1. AMITRYPTYLINE HYDROCHLORIDE [Concomitant]
     Dosage: 1 TO 3 AT NIGHT
     Route: 065
     Dates: start: 20160509, end: 20160516
  2. EMLA [Concomitant]
     Active Substance: LIDOCAINE\PRILOCAINE
     Dosage: APPLY TO SITE OF BLOOD TEST AN HOUR BEFORE TEST
     Route: 065
     Dates: start: 20160204
  3. LATANOPROST. [Concomitant]
     Active Substance: LATANOPROST
     Dosage: 1 GTT, QD AT NIGHT
     Route: 065
     Dates: start: 20160204
  4. PARACETAMOL [Concomitant]
     Active Substance: ACETAMINOPHEN
     Dosage: 2 DF, PRN, FOUR TIMES A DAY
     Route: 065
     Dates: start: 20160204
  5. CITALOPRAM [Suspect]
     Active Substance: CITALOPRAM HYDROBROMIDE
     Dosage: UNK
     Route: 065
     Dates: start: 20160204
  6. ATORVASTATIN [Concomitant]
     Active Substance: ATORVASTATIN
     Dosage: 1 DF, QD
     Route: 065
     Dates: start: 20160204
  7. ANASTRAZOLE [Concomitant]
     Active Substance: ANASTROZOLE
     Dosage: 1 DF, QD
     Dates: start: 20160204

REACTIONS (2)
  - Dystonia [Recovering/Resolving]
  - Facial spasm [Unknown]

NARRATIVE: CASE EVENT DATE: 20160715
